FAERS Safety Report 21103612 (Version 3)
Quarter: 2022Q3

REPORT INFORMATION
  Report Type: Report from Study
  Country: US (occurrence: US)
  Receive Date: 20220720
  Receipt Date: 20220927
  Transmission Date: 20221027
  Serious: Yes (Other)
  Sender: FDA-Public Use
  Company Number: US-NOVARTISPH-NVSC2022US161110

PATIENT
  Age: 55 Year
  Sex: Female

DRUGS (1)
  1. KESIMPTA [Suspect]
     Active Substance: OFATUMUMAB
     Indication: Product used for unknown indication
     Dosage: 20 MG, QMO
     Route: 058
     Dates: start: 20210420

REACTIONS (3)
  - Multiple sclerosis relapse [Unknown]
  - Vasculitis [Unknown]
  - Drug ineffective [Recovered/Resolved]

NARRATIVE: CASE EVENT DATE: 20220501
